FAERS Safety Report 10286764 (Version 1)
Quarter: 2014Q3

REPORT INFORMATION
  Report Type: Spontaneous
  Country: US (occurrence: None)
  Receive Date: 20140707
  Receipt Date: 20140707
  Transmission Date: 20150326
  Serious: Yes (Other)
  Sender: FDA-Public Use
  Company Number: None

PATIENT
  Age: 8 Year
  Sex: Female

DRUGS (1)
  1. OMNITROPE [Suspect]
     Active Substance: SOMATROPIN
     Indication: SMALL FOR DATES BABY
     Route: 058
     Dates: start: 20140402

REACTIONS (4)
  - Palpitations [None]
  - Unevaluable event [None]
  - Musculoskeletal pain [None]
  - Bone pain [None]

NARRATIVE: CASE EVENT DATE: 20140701
